FAERS Safety Report 16480138 (Version 1)
Quarter: 2019Q2

REPORT INFORMATION
  Report Type: Spontaneous
  Country: US (occurrence: US)
  Receive Date: 20190626
  Receipt Date: 20190626
  Transmission Date: 20190711
  Serious: Yes (Death, Life-Threatening, Other)
  Sender: FDA-Public Use
  Company Number: US-ALVOGEN-2019-ALVOGEN-100271

PATIENT
  Age: 25 Year
  Sex: Female

DRUGS (5)
  1. FLUOXETINE [Interacting]
     Active Substance: FLUOXETINE HYDROCHLORIDE
     Indication: DEPRESSION
  2. LITHIUM. [Interacting]
     Active Substance: LITHIUM
     Indication: ANXIETY
  3. 25I-NBOME [Interacting]
     Active Substance: 25I-NBOME
     Indication: SUBSTANCE USE
  4. FLUOXETINE [Suspect]
     Active Substance: FLUOXETINE HYDROCHLORIDE
     Indication: ANXIETY
  5. LITHIUM. [Interacting]
     Active Substance: LITHIUM
     Indication: DEPRESSION

REACTIONS (8)
  - Cardio-respiratory arrest [Fatal]
  - Drug interaction [Fatal]
  - Staring [Unknown]
  - Mental status changes [Unknown]
  - Ataxia [Fatal]
  - Tachypnoea [Fatal]
  - Respiration abnormal [Fatal]
  - Serotonin syndrome [Fatal]
